FAERS Safety Report 14082075 (Version 1)
Quarter: 2017Q4

REPORT INFORMATION
  Report Type: Spontaneous
  Country: US (occurrence: US)
  Receive Date: 20171012
  Receipt Date: 20171012
  Transmission Date: 20180321
  Serious: No
  Sender: FDA-Public Use
  Company Number: US-MYLANLABS-2017M1046265

PATIENT
  Age: 94 Year
  Sex: Female

DRUGS (1)
  1. FENTANYL TRANSDERMAL SYSTEM [Suspect]
     Active Substance: FENTANYL
     Indication: PRODUCT USED FOR UNKNOWN INDICATION
     Dosage: 25 ?G, QH, CHANGE Q72H
     Route: 062
     Dates: start: 201707

REACTIONS (5)
  - Feeling hot [Unknown]
  - Somnolence [Unknown]
  - Wrong technique in product usage process [Unknown]
  - Drug effect increased [Unknown]
  - Drug ineffective [Unknown]
